FAERS Safety Report 24722186 (Version 1)
Quarter: 2024Q4

REPORT INFORMATION
  Report Type: Report from Study
  Country: DE (occurrence: DE)
  Receive Date: 20241211
  Receipt Date: 20241211
  Transmission Date: 20250115
  Serious: Yes (Hospitalization, Other)
  Sender: SANDOZ
  Company Number: DE-002147023-NVSC2022DE127764

PATIENT
  Sex: Male

DRUGS (6)
  1. ETANERCEPT [Suspect]
     Active Substance: ETANERCEPT
     Indication: Axial spondyloarthritis
     Dosage: 50 MG
     Route: 065
     Dates: start: 20190806, end: 20190910
  2. ETANERCEPT [Suspect]
     Active Substance: ETANERCEPT
     Indication: Psoriatic arthropathy
     Dosage: 50 MG
     Route: 065
     Dates: start: 20190917, end: 20191024
  3. ETANERCEPT [Suspect]
     Active Substance: ETANERCEPT
     Dosage: 50 MG
     Route: 065
     Dates: start: 20191126, end: 20200707
  4. ETANERCEPT [Suspect]
     Active Substance: ETANERCEPT
     Dosage: 50 MG
     Route: 065
     Dates: start: 20200728, end: 20201006
  5. ETANERCEPT [Suspect]
     Active Substance: ETANERCEPT
     Dosage: 50 MG
     Route: 065
     Dates: start: 20201103, end: 20211110
  6. ETANERCEPT [Suspect]
     Active Substance: ETANERCEPT
     Dosage: 50 MG
     Route: 065
     Dates: start: 20211208

REACTIONS (4)
  - Haematochezia [Unknown]
  - Reactive gastropathy [Unknown]
  - Gingivitis [Unknown]
  - Oral herpes [Unknown]

NARRATIVE: CASE EVENT DATE: 20211110
